FAERS Safety Report 8336681-X (Version None)
Quarter: 2012Q2

REPORT INFORMATION
  Report Type: 
  Country: None (occurrence: None)
  Receive Date: 20120504
  Receipt Date: 20100604
  Transmission Date: 20120825
  Serious: No
  Sender: FDA-Public Use
  Company Number: US-TEVA-2010003074

PATIENT
  Sex: Male

DRUGS (1)
  1. NUVIGIL [Suspect]
     Route: 048
     Dates: start: 20100501, end: 20100601

REACTIONS (8)
  - BODY TEMPERATURE INCREASED [None]
  - MALAISE [None]
  - TREMOR [None]
  - DECREASED APPETITE [None]
  - FEELING COLD [None]
  - DRUG INEFFECTIVE [None]
  - DIZZINESS [None]
  - ABDOMINAL PAIN UPPER [None]
